FAERS Safety Report 23703811 (Version 1)
Quarter: 2024Q2

REPORT INFORMATION
  Report Type: Spontaneous
  Country: US (occurrence: US)
  Receive Date: 20240403
  Receipt Date: 20240403
  Transmission Date: 20240716
  Serious: Yes (Other)
  Sender: FDA-Public Use
  Company Number: US-BAUSCHBL-2024BNL003895

PATIENT
  Age: 28 Year
  Sex: Male

DRUGS (2)
  1. PROPARACAINE [Suspect]
     Active Substance: PROPARACAINE
     Indication: Corneal abrasion
     Dosage: RIGHT EYE
     Route: 061
  2. POLYMYXIN B SULFATE AND TRIMETHOPRIM [Suspect]
     Active Substance: POLYMYXIN B SULFATE\TRIMETHOPRIM SULFATE
     Indication: Corneal abrasion
     Route: 061

REACTIONS (2)
  - Drug abuse [Unknown]
  - Keratopathy [Unknown]
